FAERS Safety Report 14341062 (Version 3)
Quarter: 2018Q1

REPORT INFORMATION
  Report Type: Spontaneous
  Country: RO (occurrence: RO)
  Receive Date: 20180102
  Receipt Date: 20180119
  Transmission Date: 20180509
  Serious: Yes (Hospitalization, Other)
  Sender: FDA-Public Use
  Company Number: RO-SUN PHARMACEUTICAL INDUSTRIES LTD-2017RR-158501

PATIENT
  Age: 34 Year
  Sex: Female

DRUGS (8)
  1. HEPARIN [Suspect]
     Active Substance: HEPARIN SODIUM
     Indication: THROMBOCYTOSIS
     Dosage: 6000 UL
     Route: 065
  2. FOLIC ACID. [Suspect]
     Active Substance: FOLIC ACID
     Indication: THROMBOCYTOSIS
     Dosage: 1 MG, DAILY
     Route: 065
  3. ASPENTER [Suspect]
     Active Substance: ASPIRIN
     Dosage: 75 UNK, UNK
     Route: 065
  4. ANAGRELIDE. [Suspect]
     Active Substance: ANAGRELIDE HYDROCHLORIDE
     Indication: PRODUCT USED FOR UNKNOWN INDICATION
     Dosage: 1 MG, DAILY
     Route: 065
  5. INTERFERON-A [Suspect]
     Active Substance: INTERFERON
     Indication: THROMBOCYTOSIS
     Dosage: 3 MU/DAY
     Route: 065
  6. VITAMIN B6 [Suspect]
     Active Substance: PYRIDOXINE HYDROCHLORIDE
     Indication: THROMBOCYTOSIS
     Dosage: 250 MG, DAILY
     Route: 065
  7. ASPENTER [Suspect]
     Active Substance: ASPIRIN
     Indication: THROMBOCYTOSIS
     Dosage: 150 MG, DAILY
     Route: 065
  8. VITAMIN C [Suspect]
     Active Substance: ASCORBIC ACID
     Indication: THROMBOCYTOSIS
     Dosage: 1 G, DAILY
     Route: 065

REACTIONS (2)
  - Vaginal haemorrhage [Unknown]
  - Threatened labour [Unknown]
